FAERS Safety Report 7869429-3 (Version None)
Quarter: 2011Q4

REPORT INFORMATION
  Report Type: 
  Country: None (occurrence: None)
  Receive Date: 20111027
  Receipt Date: 20111019
  Transmission Date: 20120403
  Serious: Yes (Other)
  Sender: FDA-Public Use
  Company Number: 2011AP002472

PATIENT

DRUGS (1)
  1. VALPROIC ACID SYRUP [Suspect]
     Indication: PRODUCT USED FOR UNKNOWN INDICATION

REACTIONS (3)
  - DEMENTIA [None]
  - HYDROCEPHALUS [None]
  - GAIT DISTURBANCE [None]
